FAERS Safety Report 4542517-5 (Version None)
Quarter: 2004Q4

REPORT INFORMATION
  Report Type: 
  Country: None (occurrence: None)
  Receive Date: 20041227
  Receipt Date: 20041213
  Transmission Date: 20050328
  Serious: Yes (Death, Life-Threatening, Hospitalization, Congenital Anomaly, Other)
  Sender: FDA-Public Use
  Company Number: 2004112359

PATIENT
  Sex: Female

DRUGS (1)
  1. DILANTIN SUSPENSION (PHENYTOIN SODIM) [Suspect]
     Indication: ILL-DEFINED DISORDER
     Dosage: PLACENTAL
     Dates: start: 20040802, end: 20040917

REACTIONS (6)
  - CARDIAC FAILURE [None]
  - COLLAPSE OF LUNG [None]
  - DRUG EXPOSURE DURING PREGNANCY [None]
  - LUNG DISORDER [None]
  - PREMATURE BABY [None]
  - PULMONARY MALFORMATION [None]
